FAERS Safety Report 25113957 (Version 1)
Quarter: 2025Q1

REPORT INFORMATION
  Report Type: Report from Study
  Country: KR (occurrence: KR)
  Receive Date: 20250324
  Receipt Date: 20250324
  Transmission Date: 20250409
  Serious: Yes (Other)
  Sender: AKEBIA THERAPEUTICS
  Company Number: KR-KERYX BIOPHARMACEUTICALS INC.-KR-AKEB-25-000159

PATIENT
  Age: 60 Year
  Sex: Female
  Weight: 54.2 kg

DRUGS (10)
  1. FERRIC CITRATE ANHYDROUS [Suspect]
     Active Substance: FERRIC CITRATE ANHYDROUS
     Indication: Hyperphosphataemia
     Dosage: 1500 MILLIGRAM, TID
     Route: 048
     Dates: start: 20240910, end: 20241009
  2. ANFRADE SR [Concomitant]
     Indication: Product used for unknown indication
     Route: 065
     Dates: start: 20190828
  3. MICATERE [Concomitant]
     Indication: Product used for unknown indication
     Route: 065
     Dates: start: 20190813
  4. NORVASC [Concomitant]
     Active Substance: AMLODIPINE BESYLATE
     Indication: Product used for unknown indication
     Route: 065
     Dates: start: 20190813
  5. CARVEDILOL [Concomitant]
     Active Substance: CARVEDILOL
     Indication: Product used for unknown indication
     Route: 065
     Dates: start: 20240208
  6. CEFUROXIME [Concomitant]
     Active Substance: CEFUROXIME
     Indication: Product used for unknown indication
     Route: 065
     Dates: start: 20200115
  7. BONKY [Concomitant]
     Indication: Product used for unknown indication
     Route: 065
     Dates: start: 20240910
  8. RENALMIN [Concomitant]
     Indication: Product used for unknown indication
     Route: 065
     Dates: start: 20191213
  9. FEROBA YOU SR [Concomitant]
     Indication: Product used for unknown indication
     Route: 065
     Dates: start: 20230613
  10. ERYTHROPOIETIN [Concomitant]
     Active Substance: ERYTHROPOIETIN
     Indication: Product used for unknown indication
     Route: 065
     Dates: start: 20230822

REACTIONS (2)
  - Melaena [Recovering/Resolving]
  - Constipation [Recovering/Resolving]

NARRATIVE: CASE EVENT DATE: 20241009
